FAERS Safety Report 22047267 (Version 1)
Quarter: 2023Q1

REPORT INFORMATION
  Report Type: Spontaneous
  Country: US (occurrence: US)
  Receive Date: 20230301
  Receipt Date: 20230301
  Transmission Date: 20230418
  Serious: No
  Sender: FDA-Public Use
  Company Number: US-009507513-2302USA000522

PATIENT
  Age: 69 Year
  Sex: Male

DRUGS (2)
  1. KEYTRUDA [Suspect]
     Active Substance: PEMBROLIZUMAB
     Indication: Angiosarcoma
     Dosage: INFUSION EVERY 3 WEEKS (Q3W)
     Dates: start: 202212
  2. MORNIFLUMATE [Concomitant]
     Active Substance: MORNIFLUMATE

REACTIONS (3)
  - Fatigue [Not Recovered/Not Resolved]
  - Tinnitus [Not Recovered/Not Resolved]
  - Product use in unapproved indication [Unknown]

NARRATIVE: CASE EVENT DATE: 20221201
